FAERS Safety Report 5305914-6 (Version None)
Quarter: 2007Q2

REPORT INFORMATION
  Report Type: 
  Country: None (occurrence: None)
  Receive Date: 20070424
  Receipt Date: 20070418
  Transmission Date: 20071010
  Serious: Yes (Other)
  Sender: FDA-Public Use
  Company Number: JP-JPN-A200701323

PATIENT
  Age: 8 Year
  Sex: Female
  Weight: 28 kg

DRUGS (1)
  1. RELENZA [Suspect]
     Indication: INFLUENZA
     Dosage: 10MG TWICE PER DAY
     Route: 055
     Dates: start: 20070312, end: 20070312

REACTIONS (3)
  - ABNORMAL BEHAVIOUR [None]
  - EUPHORIC MOOD [None]
  - HALLUCINATION, AUDITORY [None]
